FAERS Safety Report 15422753 (Version 2)
Quarter: 2018Q4

REPORT INFORMATION
  Report Type: Report from Study
  Country: JP (occurrence: JP)
  Receive Date: 20180925
  Receipt Date: 20181025
  Transmission Date: 20190204
  Serious: Yes (Hospitalization, Other)
  Sender: FDA-Public Use
  Company Number: JP-TEVA-2018-JP-956993

PATIENT
  Age: 11 Year
  Sex: Male

DRUGS (5)
  1. ARA-C [Suspect]
     Active Substance: CYTARABINE
     Indication: ACUTE MYELOID LEUKAEMIA
     Dosage: PART OF ECM CHEMOTHERAPEUTIC REGIMEN; ON DAYS 6-12; ADMINISTERED VIA A CENTRAL VENOUS CATHETER
     Route: 042
  2. ETOPOSIDE. [Suspect]
     Active Substance: ETOPOSIDE
     Indication: ACUTE MYELOID LEUKAEMIA
     Dosage: PART OF ECM CHEMOTHERAPEUTIC REGIMEN; ON DAYS 1-5; ADMINISTERED VIA A CENTRAL VENOUS CATHETER
     Route: 042
  3. MITOXANTRONE [Suspect]
     Active Substance: MITOXANTRONE HYDROCHLORIDE
     Indication: ACUTE MYELOID LEUKAEMIA
     Dosage: PART OF ECM CHEMOTHERAPEUTIC REGIMEN; ON DAYS 6-10; ADMINISTERED VIA A CENTRAL VENOUS CATHETER
     Route: 042
  4. VORICONAZOLE. [Suspect]
     Active Substance: VORICONAZOLE
     Indication: ANTIFUNGAL PROPHYLAXIS
     Route: 048
  5. TRIMETHOPRIM/SULFAMETHOXAZOLE [Concomitant]
     Active Substance: SULFAMETHOXAZOLE\TRIMETHOPRIM
     Indication: ANTIFUNGAL PROPHYLAXIS
     Route: 065

REACTIONS (2)
  - Drug ineffective [Unknown]
  - Lower respiratory tract infection fungal [Unknown]
